FAERS Safety Report 4997128-4 (Version None)
Quarter: 2006Q2

REPORT INFORMATION
  Report Type: 
  Country: None (occurrence: None)
  Receive Date: 20060505
  Receipt Date: 20060505
  Transmission Date: 20061013
  Serious: No
  Sender: FDA-Public Use
  Company Number: None

PATIENT
  Age: 58 Year
  Sex: Male
  Weight: 83.9154 kg

DRUGS (2)
  1. FLONASE [Suspect]
     Indication: NASAL CONGESTION
     Dosage: 1 SPRAY 2 PER DAY
     Dates: start: 20060421, end: 20060502
  2. FLONASE [Suspect]
     Indication: SINUSITIS
     Dosage: 1 SPRAY 2 PER DAY
     Dates: start: 20060421, end: 20060502

REACTIONS (9)
  - AGITATION [None]
  - COLD SWEAT [None]
  - MIDDLE INSOMNIA [None]
  - NASAL CONGESTION [None]
  - NERVOUSNESS [None]
  - PANIC ATTACK [None]
  - PRURITUS [None]
  - RHINALGIA [None]
  - THERAPEUTIC RESPONSE UNEXPECTED WITH DRUG SUBSTITUTION [None]
